FAERS Safety Report 9309140 (Version 1)
Quarter: 2013Q2

REPORT INFORMATION
  Report Type: Other
  Country: US (occurrence: US)
  Receive Date: 20130525
  Receipt Date: 20130525
  Transmission Date: 20140414
  Serious: No
  Sender: FDA-Public Use
  Company Number: US-BRISTOL-MYERS SQUIBB COMPANY-18723569

PATIENT
  Sex: 0

DRUGS (3)
  1. EXENATIDE [Suspect]
     Indication: TYPE 2 DIABETES MELLITUS
  2. METFORMIN HCL [Concomitant]
  3. EXENATIDE UNK STRENGTH PEN, DISPOSABLE DEVICE [Concomitant]

REACTIONS (1)
  - Hypoglycaemia [Unknown]
